FAERS Safety Report 21293635 (Version 2)
Quarter: 2022Q3

REPORT INFORMATION
  Report Type: Report from Study
  Country: FR (occurrence: None)
  Receive Date: 20220905
  Receipt Date: 20220908
  Transmission Date: 20221027
  Serious: Yes (Death, Life-Threatening, Hospitalization)
  Sender: FDA-Public Use
  Company Number: 2022A299296

PATIENT
  Age: 26535 Day
  Sex: Female
  Weight: 83 kg

DRUGS (9)
  1. EVUSHELD [Suspect]
     Active Substance: CILGAVIMAB\TIXAGEVIMAB
     Indication: COVID-19 prophylaxis
     Dosage: TIXAGEVIMAB 150 MG/CILGAVIMAB 150 MG ONCE/SINGLE ADMINISTRATION
     Route: 030
     Dates: start: 20220301, end: 20220301
  2. PROGRAF [Concomitant]
     Active Substance: TACROLIMUS
     Indication: Immunosuppressant drug therapy
     Route: 065
  3. PREDNISONE [Concomitant]
     Active Substance: PREDNISONE
     Indication: Immunosuppressant drug therapy
     Route: 065
  4. KARDEGIC [Concomitant]
     Active Substance: ASPIRIN DL-LYSINE
     Route: 065
  5. VITAMIN D3 [Concomitant]
     Active Substance: CHOLECALCIFEROL
     Dosage: ONE EVERY 3 MONTHS
     Route: 065
  6. FUROSEMIDE [Concomitant]
     Active Substance: FUROSEMIDE
     Route: 065
  7. URSODIOL [Concomitant]
     Active Substance: URSODIOL
     Dosage: 1 IN THE MORNING AND 1 IN THE EVENING,500
     Route: 065
  8. ESOMEPRAZOLE [Concomitant]
     Active Substance: ESOMEPRAZOLE
     Route: 065
  9. NEBIVOLOL [Concomitant]
     Active Substance: NEBIVOLOL
     Dosage: 5: 0.25 IN THE MORNING.
     Route: 065

REACTIONS (10)
  - Sepsis [Fatal]
  - Liver abscess [Fatal]
  - Septic shock [Fatal]
  - Biliary tract infection [Fatal]
  - Multiple organ dysfunction syndrome [Fatal]
  - Cholangitis infective [Fatal]
  - Pleural effusion [Unknown]
  - Aneurysm ruptured [Unknown]
  - Gastroenteritis Escherichia coli [Unknown]
  - Bacteroides test positive [Unknown]

NARRATIVE: CASE EVENT DATE: 20220804
